FAERS Safety Report 24031648 (Version 1)
Quarter: 2024Q2

REPORT INFORMATION
  Report Type: Spontaneous
  Country: JP (occurrence: JP)
  Receive Date: 20240629
  Receipt Date: 20240629
  Transmission Date: 20240717
  Serious: Yes (Hospitalization, Other)
  Sender: FDA-Public Use
  Company Number: JP-ABBVIE-5817462

PATIENT
  Age: 70 Year
  Sex: Female

DRUGS (4)
  1. RINVOQ [Suspect]
     Active Substance: UPADACITINIB
     Indication: Rheumatoid arthritis
     Dosage: FORM STRENGTH: 15 MG
     Route: 048
  2. RINVOQ [Suspect]
     Active Substance: UPADACITINIB
     Indication: Rheumatoid arthritis
     Dosage: FORM STRENGTH: 15 MG
     Route: 048
  3. REMDESIVIR [Concomitant]
     Active Substance: REMDESIVIR
     Indication: COVID-19
  4. CEFTRIAXONE SODIUM [Concomitant]
     Active Substance: CEFTRIAXONE SODIUM
     Indication: Extradural abscess
     Dosage: HYDRATE

REACTIONS (11)
  - Decreased appetite [Unknown]
  - Intervertebral discitis [Recovering/Resolving]
  - Pseudocholelithiasis [Unknown]
  - Walking aid user [Unknown]
  - Red blood cell sedimentation rate increased [Unknown]
  - Cholecystitis acute [Unknown]
  - Extradural abscess [Recovering/Resolving]
  - COVID-19 [Unknown]
  - C-reactive protein increased [Unknown]
  - Back pain [Unknown]
  - Pneumonia [Unknown]
